FAERS Safety Report 25378640 (Version 1)
Quarter: 2025Q2

REPORT INFORMATION
  Report Type: Spontaneous
  Country: US (occurrence: US)
  Receive Date: 20250530
  Receipt Date: 20250530
  Transmission Date: 20250717
  Serious: No
  Sender: ROCHE
  Company Number: US-ROCHE-10000293804

PATIENT
  Age: 49 Year
  Sex: Female
  Weight: 58.97 kg

DRUGS (8)
  1. XOLAIR [Suspect]
     Active Substance: OMALIZUMAB
     Indication: Idiopathic urticaria
     Route: 058
     Dates: start: 20250519
  2. MOMETASONE [Concomitant]
     Active Substance: MOMETASONE
  3. CETIRIZINE HYDROCHLORIDE [Concomitant]
     Active Substance: CETIRIZINE HYDROCHLORIDE
  4. MUPIROCIN [Concomitant]
     Active Substance: MUPIROCIN
  5. MONTELUKAST [Concomitant]
     Active Substance: MONTELUKAST
  6. OPZELURA [Concomitant]
     Active Substance: RUXOLITINIB PHOSPHATE
  7. HYDROCORTISONE [Concomitant]
     Active Substance: HYDROCORTISONE
  8. FEXOFENADINE [Concomitant]
     Active Substance: FEXOFENADINE HYDROCHLORIDE

REACTIONS (2)
  - Tremor [Recovered/Resolved]
  - Headache [Not Recovered/Not Resolved]

NARRATIVE: CASE EVENT DATE: 20250519
